FAERS Safety Report 9385639 (Version 1)
Quarter: 2013Q3

REPORT INFORMATION
  Report Type: Spontaneous
  Country: FR (occurrence: FR)
  Receive Date: 20130705
  Receipt Date: 20130705
  Transmission Date: 20140515
  Serious: Yes (Hospitalization)
  Sender: FDA-Public Use
  Company Number: FR-GLAXOSMITHKLINE-B0903421A

PATIENT
  Age: 78 Year
  Sex: Female

DRUGS (14)
  1. ARIXTRA [Suspect]
     Indication: THROMBOPHLEBITIS
     Dosage: 7.5MG PER DAY
     Route: 058
     Dates: start: 20130201, end: 20130203
  2. NAPROXENE [Suspect]
     Indication: SCIATICA
     Dosage: 550MG PER DAY
     Route: 048
     Dates: start: 20130121, end: 20130203
  3. PROFENID [Suspect]
     Indication: SCIATICA
     Route: 042
     Dates: start: 20130121, end: 20130203
  4. LANTUS [Concomitant]
     Route: 065
  5. APROVEL [Concomitant]
     Route: 065
  6. NOVONORM [Concomitant]
     Route: 065
  7. TENORETIC [Concomitant]
     Route: 065
  8. STAGID [Concomitant]
     Route: 065
  9. ENDOTELON [Concomitant]
     Route: 065
  10. EZETROL [Concomitant]
     Route: 065
  11. TEMESTA [Concomitant]
     Route: 065
  12. GINKOR [Concomitant]
     Route: 065
  13. LANSOPRAZOLE [Concomitant]
     Route: 065
  14. DAFALGAN [Concomitant]
     Route: 065

REACTIONS (5)
  - Melaena [Recovered/Resolved]
  - Anaemia [Recovered/Resolved]
  - Drug interaction [Unknown]
  - Sciatica [Unknown]
  - Diabetes mellitus inadequate control [Unknown]
